FAERS Safety Report 25750856 (Version 1)
Quarter: 2025Q3

REPORT INFORMATION
  Report Type: Report from Study
  Country: US (occurrence: US)
  Receive Date: 20250902
  Receipt Date: 20250902
  Transmission Date: 20251020
  Serious: Yes (Hospitalization)
  Sender: GILEAD
  Company Number: US-GILEAD-2025-0726240

PATIENT
  Age: 54 Year
  Sex: Female

DRUGS (1)
  1. SELADELPAR [Suspect]
     Active Substance: SELADELPAR
     Indication: Product used for unknown indication
     Dosage: 10 MG PO ONCE DAILY
     Route: 048

REACTIONS (3)
  - Hypertension [Unknown]
  - Liver disorder [Unknown]
  - Product dose omission issue [Unknown]
